FAERS Safety Report 6704275-5 (Version None)
Quarter: 2010Q2

REPORT INFORMATION
  Report Type: 
  Country: None (occurrence: None)
  Receive Date: 20100430
  Receipt Date: 20100330
  Transmission Date: 20101027
  Serious: No
  Sender: FDA-Public Use
  Company Number: US-BAYER-201018450NA

PATIENT
  Age: 55 Year
  Sex: Male
  Weight: 63 kg

DRUGS (4)
  1. ULTRAVIST 300 [Suspect]
     Indication: COMPUTERISED TOMOGRAM THORAX
     Dosage: TOTAL DAILY DOSE: 95 ML  UNIT DOSE: 200 ML
     Route: 042
     Dates: start: 20100330, end: 20100330
  2. PREDNISONE [Concomitant]
     Dosage: AS USED: 50 MG
  3. BENADRYL [Concomitant]
     Dosage: AS USED: 50 MG
     Dates: start: 20100330, end: 20100330
  4. READI-CAT 2 [Concomitant]
     Dates: start: 20100330, end: 20100330

REACTIONS (1)
  - SNEEZING [None]
